FAERS Safety Report 6736901-9 (Version None)
Quarter: 2010Q2

REPORT INFORMATION
  Report Type: 
  Country: None (occurrence: None)
  Receive Date: 20100521
  Receipt Date: 20100519
  Transmission Date: 20101027
  Serious: Yes (Hospitalization)
  Sender: FDA-Public Use
  Company Number: US-GILEAD-2010-0029302

PATIENT
  Sex: Female
  Weight: 53.572 kg

DRUGS (8)
  1. LETAIRIS [Suspect]
     Indication: PULMONARY ARTERIAL HYPERTENSION
     Route: 048
     Dates: start: 20080916
  2. COUMADIN [Concomitant]
  3. LASIX [Concomitant]
  4. ATENOLOL [Concomitant]
  5. DIOVAN [Concomitant]
  6. LOTENSIN [Concomitant]
  7. ASMANEX TWISTHALER [Concomitant]
  8. ALREX [Concomitant]

REACTIONS (2)
  - FALL [None]
  - HIP FRACTURE [None]
